FAERS Safety Report 22324199 (Version 1)
Quarter: 2023Q2

REPORT INFORMATION
  Report Type: Spontaneous
  Country: IT (occurrence: None)
  Receive Date: 20230516
  Receipt Date: 20230516
  Transmission Date: 20230722
  Serious: Yes (Hospitalization)
  Sender: FDA-Public Use
  Company Number: IT-ROCHE-3350140

PATIENT
  Age: 55 Year
  Sex: Male

DRUGS (1)
  1. RIVOTRIL [Suspect]
     Active Substance: CLONAZEPAM
     Indication: Product used for unknown indication
     Route: 048
     Dates: start: 20230404, end: 20230404

REACTIONS (2)
  - Respiratory distress [Recovered/Resolved]
  - Intentional overdose [Unknown]

NARRATIVE: CASE EVENT DATE: 20230404
